FAERS Safety Report 18458532 (Version 1)
Quarter: 2020Q4

REPORT INFORMATION
  Report Type: Report from Study
  Country: US (occurrence: US)
  Receive Date: 20201103
  Receipt Date: 20201103
  Transmission Date: 20210114
  Serious: Yes (Hospitalization, Other)
  Sender: FDA-Public Use
  Company Number: US-TAKEDA-US202000742

PATIENT

DRUGS (8)
  1. TEDUGLUTIDE [Suspect]
     Active Substance: TEDUGLUTIDE
     Indication: SHORT-BOWEL SYNDROME
     Dosage: 2.4 MILLIGRAM DAILY (0.500 MG/KG, 7 TED DOSES PER WEEK)
     Route: 065
     Dates: start: 20140626, end: 20140901
  2. MULTIVITAMINS [VITAMINS NOS] [Concomitant]
     Active Substance: VITAMINS
     Indication: SHORT-BOWEL SYNDROME
     Dosage: 2 DOSAGE FORM, QD
     Route: 048
  3. TEDUGLUTIDE [Suspect]
     Active Substance: TEDUGLUTIDE
     Indication: SHORT-BOWEL SYNDROME
     Dosage: 2.4 MILLIGRAM DAILY (0.500 MG/KG, 7 TED DOSES PER WEEK)
     Route: 065
     Dates: start: 20140626, end: 20140901
  4. ACETAMINOPHEN. [Concomitant]
     Active Substance: ACETAMINOPHEN
     Indication: ARTHRITIS BACTERIAL
     Dosage: 325 MILLIGRAM, PRN
     Route: 048
     Dates: start: 20180305, end: 20190220
  5. TEDUGLUTIDE [Suspect]
     Active Substance: TEDUGLUTIDE
     Indication: SHORT-BOWEL SYNDROME
     Dosage: 2.4 MILLIGRAM DAILY (0.500 MG/KG, 7 TED DOSES PER WEEK)
     Route: 065
     Dates: start: 20140626, end: 20140901
  6. TEDUGLUTIDE [Suspect]
     Active Substance: TEDUGLUTIDE
     Indication: SHORT-BOWEL SYNDROME
     Dosage: 2.4 MILLIGRAM DAILY (0.500 MG/KG, 7 TED DOSES PER WEEK)
     Route: 065
     Dates: start: 20140626, end: 20140901
  7. PREDNISOLONE ACETATE. [Concomitant]
     Active Substance: PREDNISOLONE ACETATE
     Dosage: 1 MILLILITER, QID
     Route: 047
  8. SANDOSTATIN LAR DEPOT [Concomitant]
     Active Substance: OCTREOTIDE ACETATE
     Indication: DIARRHOEA
     Dosage: 20 MILLIGRAM, EVERY 28 DAYS
     Route: 030
     Dates: start: 20180104

REACTIONS (2)
  - Pneumonia [Recovered/Resolved]
  - Device related infection [Recovered/Resolved]

NARRATIVE: CASE EVENT DATE: 20171101
